FAERS Safety Report 10594269 (Version 1)
Quarter: 2014Q4

REPORT INFORMATION
  Report Type: Spontaneous
  Country: US (occurrence: US)
  Receive Date: 20141119
  Receipt Date: 20141119
  Transmission Date: 20150529
  Serious: Yes (Death, Other)
  Sender: FDA-Public Use
  Company Number: US-CUBIST PHARMACEUTICALS, INC.-2014CBST001548

PATIENT

DRUGS (8)
  1. CUBICIN [Suspect]
     Active Substance: DAPTOMYCIN
     Indication: ENTEROBACTER BACTERAEMIA
     Dosage: UNK UNK, UNK
     Route: 065
  2. HISTAMINE 1 [Concomitant]
     Indication: ACUTE MYELOID LEUKAEMIA
  3. HISTAMINE 2 [Concomitant]
     Indication: ACUTE MYELOID LEUKAEMIA
  4. LEUKOTRIENE RECEPTOR ANTAGONISTS [Concomitant]
     Indication: ACUTE MYELOID LEUKAEMIA
  5. LEUKOTRIENE RECEPTOR ANTAGONISTS [Concomitant]
     Indication: SYSTEMIC MASTOCYTOSIS
     Dosage: UNK UNK, UNK
     Route: 065
  6. HISTAMINE 1 [Concomitant]
     Indication: SYSTEMIC MASTOCYTOSIS
     Dosage: UNK UNK, UNK
     Route: 065
  7. HISTAMINE 2 [Concomitant]
     Indication: SYSTEMIC MASTOCYTOSIS
     Dosage: UNK UNK, UNK
     Route: 065
  8. CUBICIN [Suspect]
     Active Substance: DAPTOMYCIN
     Indication: OFF LABEL USE

REACTIONS (4)
  - Off label use [Unknown]
  - Eczema [Recovering/Resolving]
  - Hypotension [Recovering/Resolving]
  - Multi-organ failure [Fatal]
